FAERS Safety Report 13030165 (Version 2)
Quarter: 2017Q1

REPORT INFORMATION
  Report Type: Spontaneous
  Country: DE (occurrence: DE)
  Receive Date: 20161215
  Receipt Date: 20170320
  Transmission Date: 20170428
  Serious: Yes (Other)
  Sender: FDA-Public Use
  Company Number: DE-CLINIGEN GROUP PLC/ CLINIGEN HEALTHCARE LTD-DE-CLGN-16-00446

PATIENT

DRUGS (3)
  1. DACARBAZINE. [Concomitant]
     Active Substance: DACARBAZINE
     Indication: SOFT TISSUE SARCOMA
  2. DEXRAZOXANE HCL [Suspect]
     Active Substance: DEXRAZOXANE HYDROCHLORIDE
     Indication: SOFT TISSUE SARCOMA
     Route: 042
  3. DOXORUBICIN [Suspect]
     Active Substance: DOXORUBICIN
     Indication: SOFT TISSUE SARCOMA

REACTIONS (3)
  - Ejection fraction decreased [Recovering/Resolving]
  - Cardiotoxicity [Recovered/Resolved]
  - Off label use [Unknown]
